FAERS Safety Report 15309743 (Version 1)
Quarter: 2018Q3

REPORT INFORMATION
  Report Type: Spontaneous
  Country: US (occurrence: US)
  Receive Date: 20180823
  Receipt Date: 20180823
  Transmission Date: 20181010
  Serious: No
  Sender: FDA-Public Use
  Company Number: US-MALLINCKRODT-T201802305

PATIENT
  Age: 58 Year
  Sex: Male

DRUGS (1)
  1. OXYCODONE [Suspect]
     Active Substance: OXYCODONE
     Indication: PRODUCT USED FOR UNKNOWN INDICATION
     Dosage: 15 MG EVERY 4 HOURS AS NEEDED
     Route: 048
     Dates: start: 20180526

REACTIONS (4)
  - Drug tolerance [Unknown]
  - Nausea [Unknown]
  - Drug ineffective [Unknown]
  - Malaise [Unknown]
